FAERS Safety Report 9460113 (Version 3)
Quarter: 2014Q2

REPORT INFORMATION
  Report Type: Spontaneous
  Country: FR (occurrence: FR)
  Receive Date: 20130815
  Receipt Date: 20140407
  Transmission Date: 20141212
  Serious: Yes (Hospitalization)
  Sender: FDA-Public Use
  Company Number: PHHY2013FR086017

PATIENT
  Age: 31 Year
  Sex: Female

DRUGS (1)
  1. AMOXICILLIN TRIHYDRATE+POTASSIUM CLAVULANATE SANDOZ [Suspect]
     Indication: ANTIBIOTIC PROPHYLAXIS
     Dosage: 6 G, QD
     Route: 042
     Dates: start: 20130729, end: 20130729

REACTIONS (1)
  - Renal failure acute [Recovered/Resolved]
